FAERS Safety Report 19924488 (Version 2)
Quarter: 2021Q4

REPORT INFORMATION
  Report Type: Spontaneous
  Country: LT (occurrence: LT)
  Receive Date: 20211006
  Receipt Date: 20211103
  Transmission Date: 20220303
  Serious: Yes (Hospitalization, Other)
  Sender: FDA-Public Use
  Company Number: LT-002147023-NVSC2021LT195911

PATIENT
  Age: 62 Year
  Sex: Male

DRUGS (5)
  1. CYTARABINE [Suspect]
     Active Substance: CYTARABINE
     Indication: Product used for unknown indication
     Dosage: 384 MG,CYCLIC
     Route: 065
     Dates: start: 20210726, end: 20210801
  2. CYTARABINE [Suspect]
     Active Substance: CYTARABINE
     Dosage: 3800MG
     Route: 065
     Dates: start: 20210915
  3. DAUNORUBICIN [Suspect]
     Active Substance: DAUNORUBICIN
     Indication: Product used for unknown indication
     Dosage: 115 MG, CYCLIC
     Route: 065
     Dates: start: 20210726, end: 20210728
  4. MIDOSTAURIN [Suspect]
     Active Substance: MIDOSTAURIN
     Indication: Product used for unknown indication
     Dosage: 100 MG,CYCLIC
     Route: 065
     Dates: start: 20210802, end: 20210816
  5. MIDOSTAURIN [Suspect]
     Active Substance: MIDOSTAURIN
     Dosage: 100 MG
     Route: 065
     Dates: start: 20210922

REACTIONS (7)
  - Lung infiltration [Unknown]
  - Pulmonary fibrosis [Unknown]
  - SARS-CoV-2 test positive [Unknown]
  - COVID-19 [Unknown]
  - Pyrexia [Unknown]
  - Pneumonia klebsiella [Recovered/Resolved]
  - Pneumonia fungal [Unknown]

NARRATIVE: CASE EVENT DATE: 20210820
